FAERS Safety Report 12216484 (Version 1)
Quarter: 2016Q1

REPORT INFORMATION
  Report Type: Spontaneous
  Country: US (occurrence: None)
  Receive Date: 20160328
  Receipt Date: 20160328
  Transmission Date: 20160526
  Serious: Yes (Hospitalization)
  Sender: FDA-Public Use
  Company Number: None

PATIENT
  Age: 43 Year
  Sex: Female

DRUGS (1)
  1. SOMBRA WARM THERAPY [Suspect]
     Active Substance: CAMPHOR (SYNTHETIC)\MENTHOL
     Indication: MUSCLE STRAIN
     Dosage: APPLIED TO A SURFACE, USUALLY THE SKIN
     Route: 061
     Dates: start: 20160304, end: 20160304

REACTIONS (4)
  - Burning sensation [None]
  - Blister [None]
  - Swelling [None]
  - Chemical injury [None]

NARRATIVE: CASE EVENT DATE: 20160304
